FAERS Safety Report 21850387 (Version 1)
Quarter: 2023Q1

REPORT INFORMATION
  Report Type: Other
  Country: None (occurrence: CA)
  Receive Date: 20230111
  Receipt Date: 20230111
  Transmission Date: 20230418
  Serious: Yes (Other)
  Sender: FDA-Public Use
  Company Number: CA-B.Braun Medical Inc.-2136605

PATIENT
  Age: 67 Year
  Sex: Female
  Weight: 34 kg

DRUGS (15)
  1. DEXTROSE MONOHYDRATE\THEOPHYLLINE\THEOPHYLLINE ANHYDROUS [Suspect]
     Active Substance: DEXTROSE MONOHYDRATE\THEOPHYLLINE\THEOPHYLLINE ANHYDROUS
  2. ASPIRIN [Suspect]
     Active Substance: ASPIRIN
  3. ADVAIR HFA [Suspect]
     Active Substance: FLUTICASONE PROPIONATE\SALMETEROL XINAFOATE
  4. AMLODIPINE [Suspect]
     Active Substance: AMLODIPINE BESYLATE
  5. CIPROFLOXACIN [Suspect]
     Active Substance: CIPROFLOXACIN
  6. CLONAZEPAM [Suspect]
     Active Substance: CLONAZEPAM
  7. FOLIC ACID [Suspect]
     Active Substance: FOLIC ACID
  8. MOXIFLOXACIN [Suspect]
     Active Substance: MOXIFLOXACIN
  9. RISEDRONATE SODIUM [Suspect]
     Active Substance: RISEDRONATE SODIUM
  10. ROSUVASTATIN [Suspect]
     Active Substance: ROSUVASTATIN
  11. SINGULAIR [Suspect]
     Active Substance: MONTELUKAST SODIUM
  12. ACETAMINOPHEN\TRAMADOL [Suspect]
     Active Substance: ACETAMINOPHEN\TRAMADOL
  13. OMALIZUMAB [Suspect]
     Active Substance: OMALIZUMAB
  14. PREDNISONE [Suspect]
     Active Substance: PREDNISONE
  15. CEFADROXIL [Concomitant]
     Active Substance: CEFADROXIL

REACTIONS (10)
  - Chest pain [Unknown]
  - Cough [Unknown]
  - Drug hypersensitivity [Unknown]
  - Dyspnoea [Unknown]
  - Nasal oedema [Unknown]
  - Pain [Unknown]
  - Pneumonia [Unknown]
  - Respiratory tract infection [Unknown]
  - Vomiting [Unknown]
  - Wheezing [Unknown]
